FAERS Safety Report 9948810 (Version 2)
Quarter: 2014Q1

REPORT INFORMATION
  Report Type: Spontaneous
  Country: IT (occurrence: IT)
  Receive Date: 20140304
  Receipt Date: 20140327
  Transmission Date: 20141002
  Serious: Yes (Hospitalization)
  Sender: FDA-Public Use
  Company Number: IT-009507513-1402ITA013471

PATIENT
  Age: 51 Year
  Sex: Male

DRUGS (4)
  1. VICTRELIS [Suspect]
     Indication: CHRONIC HEPATITIS C
     Dosage: 2400 MG DAILY
     Route: 048
     Dates: start: 20131028, end: 20131213
  2. PEG-INTRON [Concomitant]
     Indication: CHRONIC HEPATITIS C
     Dosage: 120 MICROGRAM
     Route: 058
     Dates: start: 20130927, end: 20131206
  3. COPEGUS [Concomitant]
     Indication: CHRONIC HEPATITIS C
     Dosage: 800 MG
     Route: 048
     Dates: start: 20130927, end: 20131212
  4. FOLIDEX [Concomitant]
     Indication: SUPPORTIVE CARE
     Dosage: 400MCG
     Route: 048
     Dates: start: 20130927, end: 20131212

REACTIONS (2)
  - Rash papulosquamous [Recovering/Resolving]
  - Pruritus generalised [Recovering/Resolving]
